FAERS Safety Report 21592653 (Version 1)
Quarter: 2022Q4

REPORT INFORMATION
  Report Type: Other
  Country: None (occurrence: US)
  Receive Date: 20221114
  Receipt Date: 20221114
  Transmission Date: 20230113
  Serious: Yes (Death, Other)
  Sender: FDA-Public Use
  Company Number: US-B.Braun Medical Inc.-2134849

PATIENT
  Age: 64 Year
  Sex: Female

DRUGS (9)
  1. DEXTROSE [Suspect]
     Active Substance: DEXTROSE
     Indication: Overdose
  2. NOREPINEPHRINE [Concomitant]
     Active Substance: NOREPINEPHRINE
  3. PHENYLEPHRINE [Concomitant]
     Active Substance: PHENYLEPHRINE HYDROCHLORIDE
  4. VASOPRESSIN [Concomitant]
     Active Substance: VASOPRESSIN
  5. DOPAMINE [Concomitant]
     Active Substance: DOPAMINE HYDROCHLORIDE
  6. EPINEPHRINE [Concomitant]
     Active Substance: EPINEPHRINE
  7. ACTIVATED CHARCOAL [Concomitant]
     Active Substance: ACTIVATED CHARCOAL
  8. INSULIN NOS [Concomitant]
     Active Substance: INSULIN NOS
  9. CALCIUM GLUCONATE [Concomitant]
     Active Substance: CALCIUM GLUCONATE

REACTIONS (2)
  - Drug ineffective [Fatal]
  - Hypervolaemia [None]
